FAERS Safety Report 5045373-4 (Version None)
Quarter: 2006Q3

REPORT INFORMATION
  Report Type: 
  Country: None (occurrence: None)
  Receive Date: 20060707
  Receipt Date: 20020301
  Transmission Date: 20061208
  Serious: No
  Sender: FDA-Public Use
  Company Number: US-GLAXOSMITHKLINE-A0362547A

PATIENT
  Sex: Female

DRUGS (1)
  1. LOTRONEX [Suspect]
     Indication: DRUG USE FOR UNKNOWN INDICATION
     Route: 048
     Dates: start: 20000601

REACTIONS (3)
  - ABDOMINAL PAIN [None]
  - COLITIS [None]
  - GASTROINTESTINAL INJURY [None]
